FAERS Safety Report 4444347-1 (Version None)
Quarter: 2004Q3

REPORT INFORMATION
  Report Type: 
  Country: None (occurrence: None)
  Receive Date: 20040813
  Receipt Date: 20040701
  Transmission Date: 20050211
  Serious: Yes (Other)
  Sender: FDA-Public Use
  Company Number: 2004222078US

PATIENT
  Sex: Female

DRUGS (1)
  1. XANAX XR [Suspect]

REACTIONS (2)
  - AMNESIA [None]
  - SOMNOLENCE [None]
